FAERS Safety Report 20460791 (Version 2)
Quarter: 2022Q1

REPORT INFORMATION
  Report Type: Report from Study
  Country: FR (occurrence: FR)
  Receive Date: 20220211
  Receipt Date: 20220211
  Transmission Date: 20220423
  Serious: Yes (Life-Threatening, Hospitalization, Other)
  Sender: FDA-Public Use
  Company Number: FR-Intas Spain-000449

PATIENT
  Age: 62 Year
  Sex: Male
  Weight: 112 kg

DRUGS (9)
  1. AMLODIPINE BESYLATE [Interacting]
     Active Substance: AMLODIPINE BESYLATE
     Dosage: UNK
  2. ATORVASTATIN CALCIUM [Interacting]
     Active Substance: ATORVASTATIN CALCIUM
     Dosage: UNK
  3. APIXABAN [Interacting]
     Active Substance: APIXABAN
     Indication: Cerebrovascular accident prophylaxis
     Dosage: PRESUMED INGESTED DOSE 23 X 10 MG (230 MG)
     Route: 048
  4. APIXABAN [Interacting]
     Active Substance: APIXABAN
     Dosage: 10 MG
     Route: 048
  5. HYDROCHLOROTHIAZIDE [Interacting]
     Active Substance: HYDROCHLOROTHIAZIDE
     Dosage: UNK
  6. CLOMIPRAMINE [Interacting]
     Active Substance: CLOMIPRAMINE
     Dosage: UNK
  7. ACETAMINOPHEN [Interacting]
     Active Substance: ACETAMINOPHEN
     Dosage: UNK
  8. BISOPROLOL [Interacting]
     Active Substance: BISOPROLOL
     Dosage: UNK
  9. POTASSIUM [Interacting]
     Active Substance: POTASSIUM
     Dosage: UNK

REACTIONS (6)
  - Intentional overdose [Unknown]
  - Suicide attempt [Unknown]
  - Shock [Unknown]
  - Drug interaction [Unknown]
  - Toxicity to various agents [Unknown]
  - Circulatory collapse [Unknown]
